FAERS Safety Report 7129059-8 (Version None)
Quarter: 2010Q4

REPORT INFORMATION
  Report Type: 
  Country: None (occurrence: None)
  Receive Date: 20101130
  Receipt Date: 20071107
  Transmission Date: 20110411
  Serious: Yes (Hospitalization)
  Sender: FDA-Public Use
  Company Number: AU-ROCHE-741491

PATIENT

DRUGS (2)
  1. XELODA [Suspect]
     Route: 065
  2. FOLFOX REGIMEN [Concomitant]

REACTIONS (2)
  - BLOOD PRESSURE INCREASED [None]
  - CHILLS [None]
